FAERS Safety Report 10753210 (Version 2)
Quarter: 2015Q1

REPORT INFORMATION
  Report Type: Spontaneous
  Country: BE (occurrence: BE)
  Receive Date: 20150130
  Receipt Date: 20150212
  Transmission Date: 20150721
  Serious: Yes (Death, Hospitalization)
  Sender: FDA-Public Use
  Company Number: BE-ABBVIE-12P-013-1017775-00

PATIENT
  Age: 81 Year
  Sex: Female

DRUGS (17)
  1. STALEVO [Concomitant]
     Active Substance: CARBIDOPA\ENTACAPONE\LEVODOPA
     Indication: PRODUCT USED FOR UNKNOWN INDICATION
     Dosage: IN URGENT CASES
  2. DUODOPA [Suspect]
     Active Substance: CARBIDOPA\LEVODOPA
     Dosage: AM DOSE= 3ML, CONTIN DOSE= 2.1ML/H DURING 16HRS, EXTRA DOSE=0.7ML
     Route: 050
     Dates: start: 20121219, end: 20130913
  3. DUODOPA [Suspect]
     Active Substance: CARBIDOPA\LEVODOPA
     Dosage: AM DOSE=5ML, CD=2.2ML/H FOR 16HRS AND ED=0.7ML
     Route: 050
     Dates: start: 20140224, end: 20140416
  4. PROLOPA HBS [Concomitant]
     Indication: PRODUCT USED FOR UNKNOWN INDICATION
     Dosage: 2 TABLETS AFTER TURNING OFF THE DUODOPA PUMP EACH EVENING
     Route: 048
     Dates: start: 20120309
  5. ESCITALOPRAM [Concomitant]
     Active Substance: ESCITALOPRAM OXALATE
     Indication: PRODUCT USED FOR UNKNOWN INDICATION
  6. DUODOPA [Suspect]
     Active Substance: CARBIDOPA\LEVODOPA
     Dosage: DOSAGE WAS CONTINUOUSLY MONITORED AND ADJUSTED
     Route: 050
     Dates: end: 20121004
  7. DUODOPA [Suspect]
     Active Substance: CARBIDOPA\LEVODOPA
     Dosage: AM DOSE= 3ML, CONTIN DOSE= 2ML/H DURING 16HRS, EXTRA DOSE=0.7ML
     Route: 050
     Dates: start: 20131216, end: 20140224
  8. ZOCOR [Concomitant]
     Active Substance: SIMVASTATIN
     Indication: PRODUCT USED FOR UNKNOWN INDICATION
  9. APOCARD [Concomitant]
     Active Substance: FLECAINIDE ACETATE
     Indication: PRODUCT USED FOR UNKNOWN INDICATION
  10. PANTOMED [Concomitant]
     Active Substance: DEXPANTHENOL
     Indication: PRODUCT USED FOR UNKNOWN INDICATION
  11. ASAFLOW [Concomitant]
     Active Substance: ASPIRIN
     Indication: PRODUCT USED FOR UNKNOWN INDICATION
  12. LORMETAZEPAM [Concomitant]
     Active Substance: LORMETAZEPAM
     Indication: PRODUCT USED FOR UNKNOWN INDICATION
  13. TAMBOCOR [Concomitant]
     Active Substance: FLECAINIDE ACETATE
     Indication: PRODUCT USED FOR UNKNOWN INDICATION
  14. DUODOPA [Suspect]
     Active Substance: CARBIDOPA\LEVODOPA
     Dosage: AM DOSE= 3ML, CONTIN DOSE= 1.8ML/H DURING 16HRS, EXTRA DOSE=0.7ML
     Route: 050
     Dates: start: 20130913
  15. MOTILIUM [Concomitant]
     Active Substance: DOMPERIDONE
     Indication: PRODUCT USED FOR UNKNOWN INDICATION
  16. DUODOPA [Suspect]
     Active Substance: CARBIDOPA\LEVODOPA
     Indication: PARKINSON^S DISEASE
     Dosage: AM DOSE: 6ML, CONTIN DOSE: 2.1ML/H FOR 16HRS AND EXTRA DOSE: 1ML
     Route: 050
     Dates: start: 20120309
  17. DUODOPA [Suspect]
     Active Substance: CARBIDOPA\LEVODOPA
     Dosage: AM DOSE: 3ML, CONTIN DOSE: 2ML/H FOR 16HRS AND EXTRA DOSE: 0.7ML
     Route: 050
     Dates: start: 20121004, end: 20121219

REACTIONS (14)
  - Malaise [Unknown]
  - Cardiac disorder [Unknown]
  - Death [Fatal]
  - Urinary tract infection [Unknown]
  - Microcytic anaemia [Unknown]
  - On and off phenomenon [Unknown]
  - Anxiety [Unknown]
  - Pneumonia [Unknown]
  - Gastrointestinal disorder [Unknown]
  - Iron deficiency anaemia [Not Recovered/Not Resolved]
  - Haemoglobin decreased [Not Recovered/Not Resolved]
  - Haemorrhage [Unknown]
  - Renal failure [Unknown]
  - Freezing phenomenon [Unknown]

NARRATIVE: CASE EVENT DATE: 201206
